FAERS Safety Report 4450303-X (Version None)
Quarter: 2004Q3

REPORT INFORMATION
  Report Type: 
  Country: None (occurrence: None)
  Receive Date: 20040914
  Receipt Date: 20040830
  Transmission Date: 20050211
  Serious: Yes (Other)
  Sender: FDA-Public Use
  Company Number: J200403727

PATIENT
  Age: 31 Year
  Sex: Male

DRUGS (4)
  1. (MYSLEE) ZOLPIDEM TABLET 5 MG [Suspect]
     Dosage: 5 MG
     Route: 048
     Dates: start: 20040427
  2. (SILECE) FLUNITRAZEPAM TABLET 1 MG [Suspect]
     Dosage: 1 MG
     Route: 048
     Dates: start: 20040401
  3. TOLEDOMIN (MILNAOIPRAN HYDROCHLORIDE) [Concomitant]
  4. SEDIEL (TANDOSPIRONE CITRATE) [Concomitant]

REACTIONS (3)
  - DIZZINESS [None]
  - FACIAL BONES FRACTURE [None]
  - FALL [None]
